FAERS Safety Report 18041776 (Version 1)
Quarter: 2020Q3

REPORT INFORMATION
  Report Type: Spontaneous
  Country: US (occurrence: US)
  Receive Date: 20200720
  Receipt Date: 20200720
  Transmission Date: 20201103
  Serious: No
  Sender: FDA-Public Use
  Company Number: US-TEVA-2020-US-1801673

PATIENT
  Sex: Female

DRUGS (1)
  1. LIDOCAINE TEVA [Suspect]
     Active Substance: LIDOCAINE
     Route: 062

REACTIONS (2)
  - Product adhesion issue [Unknown]
  - Drug ineffective [Unknown]
